FAERS Safety Report 4917386-1 (Version None)
Quarter: 2006Q1

REPORT INFORMATION
  Report Type: 
  Country: None (occurrence: None)
  Receive Date: 20060221
  Receipt Date: 20050722
  Transmission Date: 20060701
  Serious: Yes (Hospitalization)
  Sender: FDA-Public Use
  Company Number: JP-GLAXOSMITHKLINE-B0388578A

PATIENT
  Age: 24 Year
  Sex: Female

DRUGS (10)
  1. LEXIVA [Suspect]
     Indication: HIV INFECTION
     Dosage: 2U TWICE PER DAY
     Route: 048
     Dates: start: 20050707
  2. ATOVAQUONE [Suspect]
     Dosage: 10ML PER DAY
     Route: 048
     Dates: start: 20050713, end: 20050719
  3. TRUVADA [Concomitant]
     Indication: HIV INFECTION
     Dosage: 1U PER DAY
     Route: 048
     Dates: start: 20050707
  4. ZITHROMAC [Concomitant]
     Indication: MYCOBACTERIUM AVIUM COMPLEX INFECTION
     Route: 048
     Dates: start: 20050610, end: 20050815
  5. DIFLUCAN [Concomitant]
     Indication: ORAL CANDIDIASIS
     Dosage: 1U PER DAY
     Route: 048
     Dates: start: 20050717, end: 20050726
  6. PREDONINE [Concomitant]
     Indication: HYPERTHERMIA
     Dosage: 1U PER DAY
     Route: 048
     Dates: start: 20050721, end: 20050723
  7. CEFOPERAZONE + SULBACTAM [Concomitant]
     Indication: BACTERIAL INFECTION
     Dosage: 2G PER DAY
     Route: 048
     Dates: start: 20050720, end: 20050725
  8. NEO-MINOPHAGEN C [Concomitant]
     Indication: LIVER DISORDER
     Dosage: 2U PER DAY
     Route: 042
     Dates: start: 20050720, end: 20050722
  9. POLARAMINE [Concomitant]
     Indication: RASH
     Dosage: 2U PER DAY
     Route: 048
     Dates: start: 20050720, end: 20050722
  10. PERIACTIN [Concomitant]
     Dosage: 3U PER DAY
     Route: 048
     Dates: start: 20050718, end: 20050722

REACTIONS (3)
  - ERYTHEMA [None]
  - LYMPHADENOPATHY [None]
  - PYREXIA [None]
